FAERS Safety Report 9274809 (Version 1)
Quarter: 2013Q2

REPORT INFORMATION
  Report Type: Report from Study
  Country: US (occurrence: US)
  Receive Date: 20130507
  Receipt Date: 20130507
  Transmission Date: 20140414
  Serious: Yes (Other)
  Sender: FDA-Public Use
  Company Number: US-ROCHE-1220486

PATIENT
  Sex: 0

DRUGS (1)
  1. BEVACIZUMAB [Suspect]
     Indication: DIABETIC RETINAL OEDEMA
     Route: 050

REACTIONS (1)
  - Vitreous detachment [Unknown]
